FAERS Safety Report 4839381-3 (Version None)
Quarter: 2005Q4

REPORT INFORMATION
  Report Type: 
  Country: None (occurrence: None)
  Receive Date: 20051129
  Receipt Date: 20050222
  Transmission Date: 20060501
  Serious: No
  Sender: FDA-Public Use
  Company Number: US-GLAXOSMITHKLINE-A0546757A

PATIENT
  Age: 16 Year
  Sex: Male

DRUGS (2)
  1. WELLBUTRIN SR [Suspect]
     Indication: ATTENTION DEFICIT/HYPERACTIVITY DISORDER
     Dosage: 150MG PER DAY
     Route: 048
     Dates: start: 20050217, end: 20050218
  2. NO CONCURRENT MEDICATION [Concomitant]

REACTIONS (2)
  - PAIN [None]
  - TINNITUS [None]
